FAERS Safety Report 18551475 (Version 1)
Quarter: 2020Q4

REPORT INFORMATION
  Report Type: Spontaneous
  Country: FR (occurrence: FR)
  Receive Date: 20201126
  Receipt Date: 20201126
  Transmission Date: 20210114
  Serious: Yes (Death, Life-Threatening, Hospitalization)
  Sender: FDA-Public Use
  Company Number: NVSC2020FR313113

PATIENT
  Age: 67 Year
  Sex: Male
  Weight: 68 kg

DRUGS (4)
  1. ALLOPURINOL. [Concomitant]
     Active Substance: ALLOPURINOL
     Indication: PRODUCT USED FOR UNKNOWN INDICATION
     Dosage: UNK
     Route: 065
  2. NEORAL [Suspect]
     Active Substance: CYCLOSPORINE
     Indication: ORGAN TRANSPLANT
     Dosage: 150 MG, QD
     Route: 048
     Dates: start: 1991
  3. CORTANCYL [Suspect]
     Active Substance: PREDNISONE
     Indication: ORGAN TRANSPLANT
     Dosage: 10 MG, QD
     Route: 048
     Dates: start: 1991
  4. APROVEL [Concomitant]
     Active Substance: IRBESARTAN
     Indication: PRODUCT USED FOR UNKNOWN INDICATION
     Dosage: UNK
     Route: 065

REACTIONS (1)
  - COVID-19 [Fatal]

NARRATIVE: CASE EVENT DATE: 20200819
